FAERS Safety Report 10239064 (Version 1)
Quarter: 2014Q1

REPORT INFORMATION
  Report Type: Spontaneous
  Country: US (occurrence: None)
  Receive Date: 20140306
  Receipt Date: 20140306
  Transmission Date: 20141002
  Serious: Yes (Disabling, Other)
  Sender: FDA-Public Use
  Company Number: 163-21880-13041745

PATIENT
  Age: 69 Year
  Sex: Female

DRUGS (17)
  1. REVLIMID (LENALIDOMIDE) (25 MILLIGRAM, CAPSULES) [Suspect]
     Indication: PLASMA CELL MYELOMA
     Dosage: 25 MG, 14 IN 21 D
     Route: 048
     Dates: start: 20130214, end: 20130314
  2. VELCADE (BORTEZOMIB) (UNKNOWN) [Suspect]
     Indication: PRODUCT USED FOR UNKNOWN INDICATION
  3. IRON (IRON) (UNKNOWN) [Concomitant]
  4. METFORMIN (METFORMIN) (UNKNOWN) [Concomitant]
  5. LANTUS (INSULINI GLARGINE) (UNKNOWN) [Concomitant]
  6. FERRLECIT (FERRIC SODIUM GLUCONATE COMPLEX) (UNKNOWN) [Concomitant]
  7. LEVEMIR FLEXPEN (INSULIN DETEMIR) (SOLUTION) [Concomitant]
  8. HUMALOG KWIKPEN (INSULIN LISPRO) (SOLUTION) [Concomitant]
  9. LOSARTAN POTASSIUM-HCTZ (HYZAAR) (TABLETS) [Concomitant]
  10. JANUMET XR (JANUMET) (TABLETS) [Concomitant]
  11. METOPROLOL SUCCINATE ER (METOPROLOL SUCCINATE) (TABLETS) [Concomitant]
  12. AMLODIPINE BESYLATE (AMLODIPINE BESILATE) (TABLETS) [Concomitant]
  13. CATAFLAM (DICLOFENAC SODIUM (TABLETS) [Concomitant]
  14. ASPIRIN (ACETYLSALICYLIC ACID) (TABLETS) [Concomitant]
  15. ZOMETA (ZOLEDRONIC ACID0 (SOLUTION) [Concomitant]
  16. NEXIUM (ESOMEPRAZOLE) (CAPSULES) [Concomitant]
  17. DECADRON (DEXAMETHASONE) (UNKNOWN) [Concomitant]

REACTIONS (4)
  - Rash [None]
  - Angioedema [None]
  - Anaemia [None]
  - Pyrexia [None]
